FAERS Safety Report 15922559 (Version 1)
Quarter: 2019Q1

REPORT INFORMATION
  Report Type: Spontaneous
  Country: FR (occurrence: FR)
  Receive Date: 20190206
  Receipt Date: 20190206
  Transmission Date: 20190417
  Serious: Yes (Hospitalization)
  Sender: FDA-Public Use
  Company Number: FR-TEVA-2019-FR-1008669

PATIENT
  Age: 34 Year
  Sex: Male

DRUGS (5)
  1. MIDAZOLAM [Suspect]
     Active Substance: MIDAZOLAM HYDROCHLORIDE
     Indication: DRUG USE DISORDER
     Route: 045
     Dates: start: 2018, end: 20181203
  2. MODAFINIL. [Suspect]
     Active Substance: MODAFINIL
     Indication: DRUG USE DISORDER
     Route: 048
     Dates: start: 2017
  3. ABSTRAL [Suspect]
     Active Substance: FENTANYL CITRATE
     Indication: DRUG USE DISORDER
     Dosage: 10 DOSAGE FORMS DAILY;
     Route: 060
     Dates: start: 201707
  4. ACTISKENAN [Suspect]
     Active Substance: MORPHINE SULFATE
     Indication: DRUG USE DISORDER
     Route: 048
     Dates: start: 201707
  5. PECFENT [Suspect]
     Active Substance: FENTANYL CITRATE
     Indication: DRUG USE DISORDER
     Route: 045
     Dates: start: 201707

REACTIONS (2)
  - Condition aggravated [Not Recovered/Not Resolved]
  - Drug use disorder [Not Recovered/Not Resolved]

NARRATIVE: CASE EVENT DATE: 201707
